FAERS Safety Report 15242487 (Version 2)
Quarter: 2018Q3

REPORT INFORMATION
  Report Type: Other
  Country: GB (occurrence: GB)
  Receive Date: 20180806
  Receipt Date: 20180806
  Transmission Date: 20181010
  Serious: No
  Sender: FDA-Public Use
  Company Number: GB-LUPIN PHARMACEUTICALS INC.-2017-07788

PATIENT

DRUGS (1)
  1. LEVETIRACETAM. [Suspect]
     Active Substance: LEVETIRACETAM
     Indication: PRODUCT USED FOR UNKNOWN INDICATION
     Dosage: 4 GM, QD
     Route: 065

REACTIONS (5)
  - Asthenia [Unknown]
  - Intentional overdose [Unknown]
  - Somnolence [Unknown]
  - Rash [Unknown]
  - Fatigue [Unknown]
